FAERS Safety Report 11430462 (Version 1)
Quarter: 2015Q3

REPORT INFORMATION
  Report Type: Report from Study
  Country: US (occurrence: US)
  Receive Date: 20150828
  Receipt Date: 20150828
  Transmission Date: 20151125
  Serious: Yes (Hospitalization)
  Sender: FDA-Public Use
  Company Number: US-009507513-1508USA011276

PATIENT
  Age: 67 Year
  Sex: Male
  Weight: 78.9 kg

DRUGS (31)
  1. TEMSIROLIMUS [Suspect]
     Active Substance: TEMSIROLIMUS
     Indication: GLIOBLASTOMA
     Dosage: 140 MG, ONCE
     Route: 042
     Dates: start: 20150609, end: 20150609
  2. TEMSIROLIMUS [Suspect]
     Active Substance: TEMSIROLIMUS
     Dosage: 140 MG, ONCE
     Route: 042
     Dates: start: 20150708, end: 20150708
  3. ZYRTEC [Concomitant]
     Active Substance: CETIRIZINE HYDROCHLORIDE
     Indication: URTICARIA
     Dosage: 10 MG, QD
     Route: 048
     Dates: start: 2013, end: 20150714
  4. LOPID [Concomitant]
     Active Substance: GEMFIBROZIL
     Indication: HYPERTRIGLYCERIDAEMIA
     Dosage: 600 MG, BID
     Route: 048
     Dates: start: 20150701, end: 20150714
  5. COLACE [Concomitant]
     Active Substance: DOCUSATE SODIUM
     Indication: CONSTIPATION
     Dosage: 100 MG, THREE TIMES DAILY, AS NEEDED
     Route: 048
     Dates: start: 20150629
  6. DECADRON [Suspect]
     Active Substance: DEXAMETHASONE
     Dosage: 2 MG, BID
     Route: 048
     Dates: start: 20150618, end: 20150621
  7. TEMSIROLIMUS [Suspect]
     Active Substance: TEMSIROLIMUS
     Dosage: 140 MG, ONCE
     Route: 042
     Dates: start: 20150715, end: 20150715
  8. TEMSIROLIMUS [Suspect]
     Active Substance: TEMSIROLIMUS
     Dosage: 140 MG, ONCE
     Route: 042
     Dates: start: 20150722, end: 20150722
  9. POLYVINYL ALCOHOL [Concomitant]
     Active Substance: POLYVINYL ALCOHOL
     Indication: DRY EYE
     Dosage: 1 DROP TO EACH EYE, EVERY 4 HOURS AS NEEDED
     Route: 047
     Dates: start: 20150613
  10. PERCOCET [Concomitant]
     Active Substance: ACETAMINOPHEN\OXYCODONE HYDROCHLORIDE
     Indication: PAIN OF SKIN
     Dosage: 2 TAB EVERY 6 HOURS, PRN
     Route: 048
     Dates: start: 20150614
  11. DECADRON [Suspect]
     Active Substance: DEXAMETHASONE
     Indication: GLIOBLASTOMA
     Dosage: 10 MG, Q6H
     Route: 048
     Dates: start: 20150612, end: 20150613
  12. PERIFOSINE [Suspect]
     Active Substance: PERIFOSINE
     Dosage: 100 MG, QD
     Route: 048
     Dates: start: 20150610, end: 20150611
  13. PROZAC [Concomitant]
     Active Substance: FLUOXETINE HYDROCHLORIDE
     Indication: ANXIETY
     Dosage: 20 MG, QD
     Route: 048
     Dates: start: 2013
  14. ACETAMINOPHEN. [Concomitant]
     Active Substance: ACETAMINOPHEN
     Indication: NECK PAIN
     Dosage: 1-2 TABLETS, PRN
     Route: 048
     Dates: start: 201411
  15. DECADRON [Suspect]
     Active Substance: DEXAMETHASONE
     Dosage: 4 MG, Q6H
     Route: 048
     Dates: start: 20150616, end: 20150617
  16. DECADRON [Suspect]
     Active Substance: DEXAMETHASONE
     Dosage: 2 MG, QD
     Route: 048
     Dates: start: 20150622, end: 20150629
  17. DECADRON [Suspect]
     Active Substance: DEXAMETHASONE
     Dosage: 1 MG, 2 MG TAB,1/2 TAB DAILY
     Route: 048
     Dates: start: 20150630, end: 20150708
  18. PERIFOSINE [Suspect]
     Active Substance: PERIFOSINE
     Indication: GLIOBLASTOMA
     Dosage: 600 MG, Q4H
     Route: 048
     Dates: start: 20150609, end: 20150609
  19. TRIAMCINOLONE ACETONIDE. [Concomitant]
     Active Substance: TRIAMCINOLONE ACETONIDE
     Indication: URTICARIA
     Dosage: THIN LAYER TO AFFECTED AREA TWICE DAILY,AS NEEDED
     Route: 061
     Dates: start: 2013
  20. AMBIEN [Concomitant]
     Active Substance: ZOLPIDEM TARTRATE
     Indication: INSOMNIA
     Dosage: 10 MG, PRN
     Route: 048
     Dates: start: 201411
  21. TEMSIROLIMUS [Suspect]
     Active Substance: TEMSIROLIMUS
     Dosage: 140 MG, ONCE
     Route: 042
     Dates: start: 20150701, end: 20150701
  22. PERIFOSINE [Suspect]
     Active Substance: PERIFOSINE
     Dosage: 600 MG, Q4H
     Route: 048
     Dates: start: 20150701, end: 20150701
  23. PERIFOSINE [Suspect]
     Active Substance: PERIFOSINE
     Dosage: 100 MG, QD
     Route: 048
     Dates: start: 20150702, end: 20150713
  24. KEPPRA [Concomitant]
     Active Substance: LEVETIRACETAM
     Indication: CONVULSION PROPHYLAXIS
     Dosage: 1000 MG, BID
     Route: 048
     Dates: start: 201411
  25. LIPITOR [Concomitant]
     Active Substance: ATORVASTATIN CALCIUM
     Indication: HYPERCHOLESTEROLAEMIA
     Dosage: 20 MG, QD
     Route: 048
     Dates: start: 20150423, end: 20150714
  26. LORAZEPAM. [Concomitant]
     Active Substance: LORAZEPAM
     Indication: ANXIETY
     Dosage: 0.5 MG, EVERY 6 HOURS, AS NEEDED
     Route: 048
     Dates: start: 20150615
  27. LOPERAMIDE [Concomitant]
     Active Substance: LOPERAMIDE
     Indication: DIARRHOEA
     Dosage: 2 MG, Q2-4 HOURS, AS NEEDED
     Route: 048
     Dates: start: 20150609
  28. DECADRON [Suspect]
     Active Substance: DEXAMETHASONE
     Dosage: 6 MG, Q6H
     Route: 048
     Dates: start: 20150614, end: 20150615
  29. PERIFOSINE [Suspect]
     Active Substance: PERIFOSINE
     Dosage: 100 MG, QD
     Route: 048
     Dates: start: 20150715, end: 20150726
  30. LOSARTAN. [Concomitant]
     Active Substance: LOSARTAN
     Indication: HYPERTENSION
     Dosage: 50 MG, QD
     Route: 048
     Dates: start: 201407
  31. NEXIUM [Concomitant]
     Active Substance: ESOMEPRAZOLE MAGNESIUM
     Indication: PROPHYLAXIS
     Dosage: 1 CAP, QD
     Route: 048
     Dates: start: 20150613, end: 20150710

REACTIONS (2)
  - Rash maculo-papular [Unknown]
  - Fall [Recovered/Resolved with Sequelae]

NARRATIVE: CASE EVENT DATE: 2015
